FAERS Safety Report 18811496 (Version 2)
Quarter: 2021Q1

REPORT INFORMATION
  Report Type: Spontaneous
  Country: KR (occurrence: KR)
  Receive Date: 20210130
  Receipt Date: 20210212
  Transmission Date: 20210419
  Serious: Yes (Other)
  Sender: FDA-Public Use
  Company Number: KR-LUPIN PHARMACEUTICALS INC.-2021-00809

PATIENT
  Age: 61 Year
  Sex: Female

DRUGS (3)
  1. ESCITALOPRAM [Suspect]
     Active Substance: ESCITALOPRAM OXALATE
     Indication: SCHIZOPHRENIA
     Dosage: 10 MILLIGRAM
     Route: 065
  2. AMISULPRIDE [Suspect]
     Active Substance: AMISULPRIDE
     Indication: SCHIZOPHRENIA
     Dosage: 400 MILLIGRAM
     Route: 065
  3. VALPROATE [Suspect]
     Active Substance: VALPROIC ACID
     Indication: SCHIZOPHRENIA
     Dosage: 1000 MILLIGRAM
     Route: 065

REACTIONS (6)
  - Electrocardiogram QT prolonged [Unknown]
  - Tremor [Unknown]
  - Sedation complication [Unknown]
  - Hypercholesterolaemia [Unknown]
  - Muscle rigidity [Unknown]
  - Constipation [Unknown]
